FAERS Safety Report 11017025 (Version 2)
Quarter: 2015Q2

REPORT INFORMATION
  Report Type: Spontaneous
  Country: US (occurrence: US)
  Receive Date: 20150412
  Receipt Date: 20150525
  Transmission Date: 20150821
  Serious: No
  Sender: FDA-Public Use
  Company Number: US-JNJFOC-20131018153

PATIENT
  Age: 39 Year
  Sex: Female
  Weight: 81.65 kg

DRUGS (3)
  1. ORTHO EVRA [Suspect]
     Active Substance: ETHINYL ESTRADIOL\NORELGESTROMIN
     Indication: HORMONE THERAPY
     Route: 062
     Dates: start: 201305, end: 2013
  2. AMOXICILLIN. [Suspect]
     Active Substance: AMOXICILLIN
     Indication: PRODUCT USED FOR UNKNOWN INDICATION
     Route: 065
     Dates: start: 2013
  3. ORTHO EVRA [Suspect]
     Active Substance: ETHINYL ESTRADIOL\NORELGESTROMIN
     Indication: HORMONE THERAPY
     Route: 062
     Dates: start: 2013, end: 2013

REACTIONS (4)
  - Menstruation irregular [Not Recovered/Not Resolved]
  - Amenorrhoea [Recovered/Resolved]
  - Haemorrhage [Not Recovered/Not Resolved]
  - Migraine [Recovered/Resolved]

NARRATIVE: CASE EVENT DATE: 2013
